FAERS Safety Report 11734814 (Version 1)
Quarter: 2015Q4

REPORT INFORMATION
  Report Type: Spontaneous
  Country: SG (occurrence: SG)
  Receive Date: 20151113
  Receipt Date: 20151113
  Transmission Date: 20160304
  Serious: Yes (Hospitalization)
  Sender: FDA-Public Use
  Company Number: SG-BANPHARM-20154388

PATIENT

DRUGS (1)
  1. NAPROXEN UNKNOWN PRODUCT [Suspect]
     Active Substance: NAPROXEN

REACTIONS (1)
  - Acute generalised exanthematous pustulosis [Unknown]
